FAERS Safety Report 21973782 (Version 2)
Quarter: 2023Q2

REPORT INFORMATION
  Report Type: Spontaneous
  Country: US (occurrence: US)
  Receive Date: 20230209
  Receipt Date: 20230515
  Transmission Date: 20230722
  Serious: No
  Sender: FDA-Public Use
  Company Number: US-Blueprint Medicines Corporation-793

PATIENT
  Sex: Male

DRUGS (3)
  1. AYVAKIT [Suspect]
     Active Substance: AVAPRITINIB
     Indication: Brain neoplasm malignant
     Route: 065
  2. AYVAKIT [Suspect]
     Active Substance: AVAPRITINIB
     Dosage: 250MG DAILY (ODD DAYS), 200MG DAILY (EVEN DAYS)
     Route: 065
     Dates: start: 20221003
  3. AYVAKIT [Suspect]
     Active Substance: AVAPRITINIB
     Dosage: 250MG DAILY (ODD DAYS), 200MG DAILY (EVEN DAYS)
     Route: 065
     Dates: start: 20221003

REACTIONS (2)
  - Musculoskeletal chest pain [Recovered/Resolved]
  - Off label use [Unknown]
